FAERS Safety Report 9160120 (Version 1)
Quarter: 2013Q1

REPORT INFORMATION
  Report Type: Spontaneous
  Country: FR (occurrence: FR)
  Receive Date: 20130313
  Receipt Date: 20130313
  Transmission Date: 20140127
  Serious: Yes (Hospitalization)
  Sender: FDA-Public Use
  Company Number: FR-B.I. PHARMACEUTICALS,INC./RIDGEFIELD-2013-BI-06704YA

PATIENT
  Age: 61 Year
  Sex: Male

DRUGS (1)
  1. TAMSULOSINA [Suspect]
     Indication: PROSTATIC ADENOMA
     Dosage: 0.4 MG
     Route: 048

REACTIONS (2)
  - Urinary retention [Recovered/Resolved]
  - Constipation [Not Recovered/Not Resolved]
